FAERS Safety Report 18371567 (Version 4)
Quarter: 2022Q3

REPORT INFORMATION
  Report Type: Spontaneous
  Country: JP (occurrence: JP)
  Receive Date: 20201012
  Receipt Date: 20220713
  Transmission Date: 20221026
  Serious: No
  Sender: FDA-Public Use
  Company Number: JP-GSKNCCC-CASE-01013723_AE-32980

PATIENT

DRUGS (12)
  1. FLUTICASONE PROPIONATE [Suspect]
     Active Substance: FLUTICASONE PROPIONATE
     Indication: Chest pain
     Dosage: 50 ?G, BID
     Route: 055
     Dates: start: 20191223, end: 20200819
  2. FLUTICASONE PROPIONATE [Suspect]
     Active Substance: FLUTICASONE PROPIONATE
     Dosage: 50 UG, BID
     Route: 055
     Dates: start: 20200916
  3. FLUTICASONE FUROATE\VILANTEROL TRIFENATATE [Suspect]
     Active Substance: FLUTICASONE FUROATE\VILANTEROL TRIFENATATE
     Indication: Cough
     Dosage: 200 ?G, QD
     Route: 055
     Dates: start: 20190529, end: 20190629
  4. PROCATEROL HYDROCHLORIDE [Concomitant]
     Active Substance: PROCATEROL HYDROCHLORIDE
     Indication: Bronchitis
     Dosage: 2-4 TIMES DAILY AT THE TIME OF ATTACK
     Route: 055
     Dates: start: 20080805
  5. NORVASC TABLETS [Concomitant]
     Indication: Arrhythmia
     Dosage: 1 DF, QD AFTER BREAKFAST
     Route: 048
     Dates: start: 20090929
  6. NICORANDIL [Concomitant]
     Active Substance: NICORANDIL
     Indication: Arrhythmia
     Dosage: 1 DF, TID
     Route: 048
     Dates: start: 2018
  7. NICORANDIL [Concomitant]
     Active Substance: NICORANDIL
     Dosage: 1 DF, TID AFTER EVERY MEAL
     Route: 048
     Dates: start: 20180328
  8. RIZE (JAPAN) [Concomitant]
     Indication: Insomnia
     Dosage: 1 DF, PRN AT THE TIME OF ATTACK
     Dates: start: 20200122
  9. RIZE (JAPAN) [Concomitant]
     Indication: Blood pressure increased
  10. ASPIRIN\LANSOPRAZOLE [Concomitant]
     Active Substance: ASPIRIN\LANSOPRAZOLE
     Indication: Vascular occlusion
     Dosage: 1 DF, QD AFTER BREAKFAST
     Route: 048
  11. ISOSORBIDE DINITRATE [Concomitant]
     Active Substance: ISOSORBIDE DINITRATE
     Indication: Vascular occlusion
     Dosage: UNK, QD
     Route: 050
     Dates: start: 20180208, end: 20180328
  12. MONTELUKAST SODIUM [Concomitant]
     Active Substance: MONTELUKAST SODIUM
     Indication: Cough
     Dosage: UNK, QD BEFORE BEDTIME
     Route: 048
     Dates: start: 20190227, end: 20190529

REACTIONS (3)
  - Dysphonia [Recovering/Resolving]
  - Dysphonia [Recovered/Resolved]
  - Product use in unapproved indication [Unknown]

NARRATIVE: CASE EVENT DATE: 20190101
